FAERS Safety Report 8097961-9 (Version None)
Quarter: 2012Q1

REPORT INFORMATION
  Report Type: 
  Country: None (occurrence: None)
  Receive Date: 20120128
  Receipt Date: 20110801
  Transmission Date: 20120608
  Serious: No
  Sender: FDA-Public Use
  Company Number: US-ABBOTT-11P-163-0843262-00

PATIENT
  Age: 31 Year
  Sex: Male

DRUGS (6)
  1. LEVOXYL [Concomitant]
     Indication: THYROID DISORDER
  2. CRESTOR [Concomitant]
     Indication: BLOOD CHOLESTEROL
  3. HUMIRA [Suspect]
     Indication: ANKYLOSING SPONDYLITIS
     Dates: start: 20110401
  4. SULFADIAZINE [Concomitant]
     Indication: RHEUMATOID ARTHRITIS
     Dosage: THINKS IT'S SULFADIAZAPINE
  5. LISINOPRIL [Concomitant]
     Indication: HYPERTENSION
  6. SPASM PILL [Concomitant]
     Indication: MUSCLE SPASMS

REACTIONS (1)
  - AGGRESSION [None]
